FAERS Safety Report 4522200-2 (Version None)
Quarter: 2004Q4

REPORT INFORMATION
  Report Type: 
  Country: None (occurrence: None)
  Receive Date: 20041207
  Receipt Date: 20041119
  Transmission Date: 20050328
  Serious: Yes (Life-Threatening, Hospitalization)
  Sender: FDA-Public Use
  Company Number: FR_041105246

PATIENT
  Age: 60 Year
  Sex: Male

DRUGS (12)
  1. PROZAC [Suspect]
     Dosage: 20 MG/1 DAY
     Dates: end: 20040929
  2. PREDNISONE [Concomitant]
  3. PREVISCAN (FLUINDIONE) [Concomitant]
  4. TOPALGIC (TRAMADOL HYDROCHLORIDE) [Concomitant]
  5. EUPANTOL (PANTOPRAZOLE) [Concomitant]
  6. FONZYLANE (BUFLOMEDIL HYDROCHLORIDE) [Concomitant]
  7. LASIX [Concomitant]
  8. ACETAMINOPHEN [Concomitant]
  9. KAYEXALATE [Concomitant]
  10. IMOVANE (ZOPICLONE) [Concomitant]
  11. GELOX [Concomitant]
  12. MUCOMYST(ACETYLCYSTEINE SODIUM) [Concomitant]

REACTIONS (6)
  - ACTIVATED PARTIAL THROMBOPLASTIN TIME PROLONGED [None]
  - GASTRIC ULCER [None]
  - HAEMATEMESIS [None]
  - PERITONEAL HAEMORRHAGE [None]
  - PROTHROMBIN TIME RATIO DECREASED [None]
  - SMALL INTESTINAL OBSTRUCTION [None]
